FAERS Safety Report 19498929 (Version 2)
Quarter: 2021Q3

REPORT INFORMATION
  Report Type: Spontaneous
  Country: US (occurrence: US)
  Receive Date: 20210706
  Receipt Date: 20210720
  Transmission Date: 20211014
  Serious: Yes (Other)
  Sender: FDA-Public Use
  Company Number: US-INTRA-CELLULAR THERAPIES, INC.-2021ICT00307

PATIENT
  Sex: Male
  Weight: 58.96 kg

DRUGS (6)
  1. INVEGA SUSTENNA [Concomitant]
     Active Substance: PALIPERIDONE PALMITATE
     Dosage: 234 MG, 1X/MONTH
  2. CAPLYTA [Suspect]
     Active Substance: LUMATEPERONE
     Dosage: 42 MG, 1X/DAY
     Route: 048
     Dates: start: 202105
  3. UNSPECIFIED MEDICATION [Suspect]
     Active Substance: UNSPECIFIED INGREDIENT
  4. TEGRETOL [Suspect]
     Active Substance: CARBAMAZEPINE
     Dosage: 200 MG, 2X/DAY
     Dates: start: 20210611, end: 20210619
  5. CAPLYTA [Suspect]
     Active Substance: LUMATEPERONE
     Indication: SCHIZOPHRENIA
     Dosage: 42 MG, 1X/DAY
     Route: 048
     Dates: start: 202105, end: 202105
  6. PRAZOSIN. [Concomitant]
     Active Substance: PRAZOSIN
     Dosage: 2 MG, 1X/DAY AT BEDTIME

REACTIONS (4)
  - Dyskinesia [Unknown]
  - Nightmare [Unknown]
  - Hallucination, auditory [Unknown]
  - Insomnia [Unknown]

NARRATIVE: CASE EVENT DATE: 2021
